FAERS Safety Report 8828088 (Version 2)
Quarter: 2012Q4

REPORT INFORMATION
  Report Type: 
  Country: CN (occurrence: CN)
  Receive Date: 20121005
  Receipt Date: 20121207
  Transmission Date: 20130627
  Serious: Yes (Other)
  Sender: FDA-Public Use
  Company Number: CN-JNJFOC-20120912584

PATIENT
  Sex: Female

DRUGS (2)
  1. TYLENOL COLD [Suspect]
     Indication: BRONCHITIS
     Route: 048
     Dates: start: 20090912, end: 20090912
  2. CEFALEXIN [Suspect]
     Indication: BRONCHITIS
     Route: 048
     Dates: start: 20090912

REACTIONS (6)
  - Rash pruritic [Recovered/Resolved]
  - Chest discomfort [Recovered/Resolved]
  - Malaise [Recovered/Resolved]
  - Nausea [Recovered/Resolved]
  - Vomiting [Recovered/Resolved]
  - Breath holding [Recovered/Resolved]
